FAERS Safety Report 24650864 (Version 1)
Quarter: 2024Q4

REPORT INFORMATION
  Report Type: Spontaneous
  Country: GR (occurrence: GR)
  Receive Date: 20241122
  Receipt Date: 20241122
  Transmission Date: 20250115
  Serious: No
  Sender: ALKEM
  Company Number: GR-ALKEM LABORATORIES LIMITED-GR-ALKEM-2024-12085

PATIENT
  Age: 24 Year
  Sex: Male

DRUGS (1)
  1. OLANZAPINE [Suspect]
     Active Substance: OLANZAPINE
     Indication: Schizophrenia
     Dosage: 20 MILLIGRAM, QD
     Route: 065

REACTIONS (1)
  - Restless arm syndrome [Unknown]
